FAERS Safety Report 4634994-6 (Version None)
Quarter: 2005Q2

REPORT INFORMATION
  Report Type: 
  Country: None (occurrence: None)
  Receive Date: 20050414
  Receipt Date: 20040927
  Transmission Date: 20051028
  Serious: Yes (Hospitalization)
  Sender: FDA-Public Use
  Company Number: 200413019JP

PATIENT
  Age: 54 Year
  Sex: Male

DRUGS (3)
  1. KETEK [Suspect]
     Indication: PNEUMONIA
     Route: 048
     Dates: start: 20040921, end: 20040921
  2. VOLTAREN [Suspect]
     Indication: PYREXIA
     Route: 048
     Dates: start: 20040921, end: 20040921
  3. KOLANTYL [Suspect]
     Indication: PYREXIA
     Route: 048
     Dates: start: 20040921, end: 20040921

REACTIONS (1)
  - EOSINOPHILIC PNEUMONIA [None]
